FAERS Safety Report 7750100 (Version 3)
Quarter: 2016Q2

REPORT INFORMATION
  Report Type: Report from Study
  Country: JP (occurrence: JP)
  Receive Date: 20110106
  Receipt Date: 20160512
  Transmission Date: 20160815
  Serious: Yes (Hospitalization)
  Sender: FDA-Public Use
  Company Number: PHHO2010JP19704

PATIENT
  Age: 66 Year
  Sex: Male
  Weight: 63 kg

DRUGS (10)
  1. ASVERIN (TIPEPIDINE HIBENZATE) [Suspect]
     Active Substance: TIPEPIDINE HIBENZATE
     Indication: NASOPHARYNGITIS
     Dosage: UNK
     Dates: start: 20101227, end: 20101228
  2. ENALAPRIL [Suspect]
     Active Substance: ENALAPRIL
     Indication: CARDIAC FAILURE
     Dosage: RUN IN PHASE
     Route: 048
     Dates: start: 20100803, end: 20101004
  3. ENALAPRIL [Suspect]
     Active Substance: ENALAPRIL
     Indication: CARDIAC FAILURE CHRONIC
     Dosage: 5 MG, BID
     Route: 048
     Dates: start: 20101005
  4. ALISKIREN [Suspect]
     Active Substance: ALISKIREN
     Indication: CARDIAC FAILURE
     Dosage: RUN IN PHASE
     Route: 048
     Dates: start: 20100907, end: 20101004
  5. AZULENE [Suspect]
     Active Substance: AZULENE
     Indication: NASOPHARYNGITIS
     Dosage: UNK
     Dates: start: 20101227, end: 20101228
  6. ARTIST [Suspect]
     Active Substance: CARVEDILOL
     Indication: CARDIAC FAILURE CHRONIC
     Dosage: UNK
     Dates: start: 20090630
  7. EPINASTINE HYDROCHLORIDE. [Suspect]
     Active Substance: EPINASTINE HYDROCHLORIDE
     Indication: NASOPHARYNGITIS
     Dosage: UNK
     Dates: start: 20101227, end: 20101228
  8. WARFARIN [Concomitant]
     Active Substance: WARFARIN
     Dosage: 5.25 MG, QD
     Dates: start: 20090701
  9. CLARITH [Suspect]
     Active Substance: CLARITHROMYCIN
     Indication: NASOPHARYNGITIS
     Dosage: UNK
     Dates: start: 20101227, end: 20101228
  10. MONTELUKAST [Suspect]
     Active Substance: MONTELUKAST SODIUM
     Indication: NASOPHARYNGITIS
     Dosage: UNK
     Dates: start: 20101227, end: 20101228

REACTIONS (9)
  - Brain natriuretic peptide increased [Recovering/Resolving]
  - Productive cough [Recovering/Resolving]
  - Nasopharyngitis [Unknown]
  - Cough [Recovered/Resolved]
  - Dyspnoea [Recovered/Resolved]
  - Polyuria [Recovering/Resolving]
  - Cardiac failure [Recovering/Resolving]
  - Pleural effusion [Recovering/Resolving]
  - Malaise [Unknown]

NARRATIVE: CASE EVENT DATE: 20101218
